FAERS Safety Report 15937923 (Version 2)
Quarter: 2019Q1

REPORT INFORMATION
  Report Type: Report from Study
  Country: US (occurrence: US)
  Receive Date: 20190208
  Receipt Date: 20190213
  Transmission Date: 20190417
  Serious: Yes (Other)
  Sender: FDA-Public Use
  Company Number: US-PFIZER INC-2019055859

PATIENT
  Age: 20 Year
  Sex: Male

DRUGS (4)
  1. BLEOMYCIN SULFATE [Suspect]
     Active Substance: BLEOMYCIN SULFATE
     Indication: EXTRAGONADAL PRIMARY EMBRYONAL CARCINOMA
     Dosage: UNK, CYCLIC (15 U/M2 IV OR IM BIW) (TOTAL DOSE 200 U/M2)
  2. CISPLATIN. [Suspect]
     Active Substance: CISPLATIN
     Indication: EXTRAGONADAL PRIMARY EMBRYONAL CARCINOMA
     Dosage: UNK, CYCLIC ,(REPEATED AT 28-DAY INTERVALS FOR FOUR MONTHS)
     Route: 040
  3. MANNITOL. [Concomitant]
     Active Substance: MANNITOL
     Dosage: UNK (A 30-60 MINUTE INFUSION OF 50 CC OF 25% MANNITOL AND REPEATED AT 28-DAY INTERVALS FOR FOUR MONT
  4. VINBLASTINE [Suspect]
     Active Substance: VINBLASTINE
     Indication: EXTRAGONADAL PRIMARY EMBRYONAL CARCINOMA
     Dosage: UNK, CYCLIC (ON DAY 1 AND REPEATED AT 28-DAY INTERVALS FOR FOUR MONTHS)
     Route: 040

REACTIONS (2)
  - Thrombocytopenia [Unknown]
  - Leukopenia [Unknown]
